FAERS Safety Report 23958490 (Version 1)
Quarter: 2024Q2

REPORT INFORMATION
  Report Type: Spontaneous
  Country: US (occurrence: US)
  Receive Date: 20240610
  Receipt Date: 20240610
  Transmission Date: 20240715
  Serious: Yes (Hospitalization)
  Sender: FDA-Public Use
  Company Number: US-GSK-US2024GSK071187

PATIENT

DRUGS (10)
  1. ATOVAQUONE\PROGUANIL HYDROCHLORIDE [Suspect]
     Active Substance: ATOVAQUONE\PROGUANIL HYDROCHLORIDE
     Indication: Babesiosis
     Dosage: 500/200 MG/DAY
  2. ATOVAQUONE [Suspect]
     Active Substance: ATOVAQUONE
     Indication: Babesiosis
     Dosage: UNK
  3. ATOVAQUONE [Suspect]
     Active Substance: ATOVAQUONE
     Dosage: UNK
  4. CLINDAMYCIN [Suspect]
     Active Substance: CLINDAMYCIN
     Indication: Babesiosis
     Dosage: 1800 MG, QD
  5. CLINDAMYCIN [Suspect]
     Active Substance: CLINDAMYCIN
     Dosage: 900 MG, QD
  6. AZITHROMYCIN [Suspect]
     Active Substance: AZITHROMYCIN
     Indication: Babesiosis
     Dosage: UNK
  7. AZITHROMYCIN [Suspect]
     Active Substance: AZITHROMYCIN
     Dosage: UNK
  8. QUININE [Suspect]
     Active Substance: QUININE
     Indication: Babesiosis
     Dosage: UNK
  9. RITUXIMAB [Concomitant]
     Active Substance: RITUXIMAB
     Indication: Rheumatoid arthritis
  10. METHOTREXATE [Concomitant]
     Active Substance: METHOTREXATE
     Indication: Rheumatoid arthritis

REACTIONS (3)
  - Condition aggravated [Recovered/Resolved]
  - Pathogen resistance [Unknown]
  - Drug resistance [Unknown]
